FAERS Safety Report 7335721-4 (Version None)
Quarter: 2011Q1

REPORT INFORMATION
  Report Type: 
  Country: None (occurrence: None)
  Receive Date: 20110307
  Receipt Date: 20110228
  Transmission Date: 20110831
  Serious: Yes (Hospitalization)
  Sender: FDA-Public Use
  Company Number: B0699636A

PATIENT
  Age: 56 Year
  Sex: Male
  Weight: 70.5 kg

DRUGS (1)
  1. AVANDAMET [Suspect]
     Indication: DIABETES MELLITUS
     Route: 048
     Dates: start: 20050301, end: 20060601

REACTIONS (3)
  - STENT PLACEMENT [None]
  - ANGIOPLASTY [None]
  - MYOCARDIAL INFARCTION [None]
